FAERS Safety Report 5265716-6 (Version None)
Quarter: 2007Q1

REPORT INFORMATION
  Report Type: 
  Country: None (occurrence: None)
  Receive Date: 20061213
  Receipt Date: 20041101
  Transmission Date: 20070707
  Serious: Yes (Other)
  Sender: FDA-Public Use
  Company Number: 2004UW22504

PATIENT
  Age: 74 Year
  Sex: Female

DRUGS (1)
  1. IRESSA [Suspect]

REACTIONS (5)
  - ANOREXIA [None]
  - ASTHENIA [None]
  - DRY MOUTH [None]
  - DYSPNOEA [None]
  - INSOMNIA [None]
